FAERS Safety Report 19096053 (Version 2)
Quarter: 2021Q2

REPORT INFORMATION
  Report Type: Spontaneous
  Country: DE (occurrence: DE)
  Receive Date: 20210406
  Receipt Date: 20210619
  Transmission Date: 20210717
  Serious: No
  Sender: FDA-Public Use
  Company Number: DE-LUPIN PHARMACEUTICALS INC.-2021-02609

PATIENT
  Sex: Male

DRUGS (1)
  1. TADALAFIL?HORMOSAN 20 MG FILMTABLETTEN [Suspect]
     Active Substance: TADALAFIL
     Indication: PRODUCT USED FOR UNKNOWN INDICATION
     Dosage: 20 MILLIGRAM, PRN (1 TABLET PER OCCASION)
     Route: 065

REACTIONS (1)
  - Drug ineffective [Unknown]
